FAERS Safety Report 7929916 (Version 2)
Quarter: 2013Q4

REPORT INFORMATION
  Report Type: Report from Study
  Country: US (occurrence: US)
  Receive Date: 20110504
  Receipt Date: 20131120
  Transmission Date: 20140711
  Serious: Yes (Hospitalization)
  Sender: FDA-Public Use
  Company Number: US-ALEXION-A201100595

PATIENT
  Age: 67 Year
  Sex: Female

DRUGS (4)
  1. SOLIRIS [Suspect]
     Indication: PAROXYSMAL NOCTURNAL HAEMOGLOBINURIA
     Dosage: 900 MG, UNK
     Route: 042
  2. PREDNISONE [Concomitant]
     Dosage: UNK
  3. DANAZOL [Concomitant]
     Dosage: UNK
  4. COUMADIN [Concomitant]
     Dosage: UNK

REACTIONS (4)
  - Atypical pneumonia [Recovered/Resolved]
  - Muscle strain [Unknown]
  - Discomfort [Unknown]
  - Cough [Unknown]
